FAERS Safety Report 9778975 (Version 2)
Quarter: 2014Q1

REPORT INFORMATION
  Report Type: Spontaneous
  Country: US (occurrence: US)
  Receive Date: 20131223
  Receipt Date: 20140217
  Transmission Date: 20141002
  Serious: Yes (Hospitalization, Other)
  Sender: FDA-Public Use
  Company Number: US-GILEAD-2013-0090494

PATIENT
  Age: 43 Year
  Sex: Female

DRUGS (31)
  1. LETAIRIS [Suspect]
     Indication: PORTAL HYPERTENSION
     Dosage: 5 MG, QD
     Route: 048
  2. LETAIRIS [Suspect]
     Indication: PULMONARY HYPERTENSION
  3. LETAIRIS [Suspect]
     Indication: RHEUMATOID ARTHRITIS
  4. LETAIRIS [Suspect]
     Indication: CARDIAC FAILURE CONGESTIVE
  5. LASIX                              /00032601/ [Concomitant]
     Indication: OEDEMA
     Dosage: UNK
  6. METOPROLOL [Concomitant]
     Indication: BLOOD PRESSURE
     Dosage: UNK
  7. KCL [Concomitant]
     Dosage: UNK
  8. OMEPRAZOLE [Concomitant]
     Dosage: UNK
  9. XARELTO [Concomitant]
     Dosage: UNK
  10. ASMANEX [Concomitant]
     Dosage: UNK
  11. CLONAZEPAM [Concomitant]
     Dosage: UNK
  12. FLONASE                            /00908302/ [Concomitant]
     Indication: HYPERSENSITIVITY
  13. VITAMINS NOS [Concomitant]
     Dosage: UNK
  14. LEXAPRO [Concomitant]
     Indication: DEPRESSION
     Dosage: UNK
  15. CLARITIN                           /00917501/ [Concomitant]
     Indication: HYPERSENSITIVITY
     Dosage: UNK
  16. ASPIRIN [Concomitant]
  17. CYCLOBENZAPRINE [Concomitant]
  18. DIGOXIN [Concomitant]
  19. DULERA [Concomitant]
     Dosage: UNK
     Dates: start: 20130416
  20. HYDROXYCHLOROQUINE [Concomitant]
  21. LEVOTHYROXINE [Concomitant]
  22. LIPITOR [Concomitant]
  23. LYRICA [Concomitant]
  24. METFORMIN [Concomitant]
  25. NEFAZODONE [Concomitant]
  26. PROMETHAZINE - CODEINE             /01129901/ [Concomitant]
     Dosage: UNK
     Dates: start: 20131217
  27. PROVENTIL HFA                      /00139502/ [Concomitant]
  28. SINGULAIR [Concomitant]
     Dosage: UNK
     Dates: start: 20130416
  29. WELCHOL [Concomitant]
  30. ZYRTEC [Concomitant]
  31. SPIRONOLACTONE [Concomitant]

REACTIONS (1)
  - Cardiac failure congestive [Recovering/Resolving]
